FAERS Safety Report 8573382-7 (Version None)
Quarter: 2012Q3

REPORT INFORMATION
  Report Type: 
  Country: None (occurrence: None)
  Receive Date: 20120806
  Receipt Date: 20120802
  Transmission Date: 20120928
  Serious: Yes (Hospitalization, Other)
  Sender: FDA-Public Use
  Company Number: US-PFIZER INC-2012168632

PATIENT
  Age: 52 Year
  Sex: Female
  Weight: 70.748 kg

DRUGS (3)
  1. PREMARIN [Suspect]
     Indication: HORMONE REPLACEMENT THERAPY
     Dosage: UNK
     Route: 042
     Dates: end: 20120101
  2. VITAMIN D [Concomitant]
     Dosage: UNK
  3. VITAMIN B-12 [Concomitant]
     Dosage: UNK

REACTIONS (7)
  - ARTHROPOD BITE [None]
  - WEIGHT DECREASED [None]
  - NERVE INJURY [None]
  - CONVULSION [None]
  - STAPHYLOCOCCAL INFECTION [None]
  - DYSPHAGIA [None]
  - BRAIN NEOPLASM [None]
